FAERS Safety Report 10764681 (Version 2)
Quarter: 2015Q4

REPORT INFORMATION
  Report Type: Report from Study
  Country: US (occurrence: US)
  Receive Date: 20150205
  Receipt Date: 20151117
  Transmission Date: 20160304
  Serious: No
  Sender: FDA-Public Use
  Company Number: US-AMGEN-USASL2015009686

PATIENT
  Age: 63 Year
  Sex: Female

DRUGS (1)
  1. ENBREL [Suspect]
     Active Substance: ETANERCEPT
     Indication: RHEUMATOID ARTHRITIS
     Dosage: 50 MG, QWK
     Route: 065
     Dates: start: 201312

REACTIONS (7)
  - Upper-airway cough syndrome [Unknown]
  - Musculoskeletal pain [Unknown]
  - Bladder pain [Unknown]
  - Pollakiuria [Unknown]
  - Arthralgia [Unknown]
  - Cystitis [Unknown]
  - Sinusitis [Unknown]
